FAERS Safety Report 18437049 (Version 2)
Quarter: 2020Q4

REPORT INFORMATION
  Report Type: Spontaneous
  Country: US (occurrence: US)
  Receive Date: 20201028
  Receipt Date: 20201029
  Transmission Date: 20210114
  Serious: No
  Sender: FDA-Public Use
  Company Number: US-PFIZER INC-2020415697

PATIENT
  Age: 61 Year
  Sex: Female
  Weight: 57.61 kg

DRUGS (3)
  1. ZOLOFT [Suspect]
     Active Substance: SERTRALINE HYDROCHLORIDE
     Dosage: 2 DF
  2. ZOLOFT [Suspect]
     Active Substance: SERTRALINE HYDROCHLORIDE
     Dosage: 1. 5 DF (1 AND A HALF)
  3. ZOLOFT [Suspect]
     Active Substance: SERTRALINE HYDROCHLORIDE
     Dosage: 25 MG

REACTIONS (5)
  - Tremor [Unknown]
  - Illness [Unknown]
  - Anxiety [Unknown]
  - Increased appetite [Unknown]
  - Feeling jittery [Unknown]
